FAERS Safety Report 5546762-1 (Version None)
Quarter: 2007Q4

REPORT INFORMATION
  Report Type: 
  Country: None (occurrence: None)
  Receive Date: 20071207
  Receipt Date: 20071207
  Transmission Date: 20080405
  Serious: Yes (Other)
  Sender: FDA-Public Use
  Company Number: None

PATIENT
  Age: 58 Year
  Sex: Female
  Weight: 65.7716 kg

DRUGS (2)
  1. LEVAQUIN [Suspect]
     Indication: OSTEOMYELITIS
     Dates: start: 20071115, end: 20071204
  2. CEFTRIAXONE [Concomitant]

REACTIONS (3)
  - ACCELERATED IDIOVENTRICULAR RHYTHM [None]
  - BUNDLE BRANCH BLOCK LEFT [None]
  - PALPITATIONS [None]
